FAERS Safety Report 18732437 (Version 3)
Quarter: 2021Q1

REPORT INFORMATION
  Report Type: Spontaneous
  Country: CA (occurrence: CA)
  Receive Date: 20210112
  Receipt Date: 20210205
  Transmission Date: 20210419
  Serious: Yes (Other)
  Sender: FDA-Public Use
  Company Number: CA-PFIZER INC-2020508422

PATIENT
  Age: 62 Year
  Sex: Female

DRUGS (2)
  1. XELJANZ XR [Suspect]
     Active Substance: TOFACITINIB CITRATE
     Indication: RHEUMATOID ARTHRITIS
     Dosage: 11 MG, DAILY
     Route: 048
     Dates: start: 20201216
  2. PENTASA [Concomitant]
     Active Substance: MESALAMINE
     Dosage: 1 G, 2X/DAY
     Route: 065

REACTIONS (2)
  - Hypertension [Unknown]
  - Colitis ulcerative [Recovering/Resolving]
